FAERS Safety Report 9447452 (Version 2)
Quarter: 2013Q3

REPORT INFORMATION
  Report Type: Spontaneous
  Country: US (occurrence: US)
  Receive Date: 20130808
  Receipt Date: 20130903
  Transmission Date: 20140515
  Serious: No
  Sender: FDA-Public Use
  Company Number: US-PFIZER INC-2013229037

PATIENT
  Age: 42 Year
  Sex: Female

DRUGS (7)
  1. RELPAX [Suspect]
     Dosage: UNK
  2. CEFTIN [Suspect]
     Dosage: UNK
  3. CYMBALTA [Suspect]
     Dosage: UNK
  4. PREVACID [Suspect]
     Dosage: UNK
  5. ULTRACET [Suspect]
     Dosage: UNK
  6. VICODIN [Suspect]
     Dosage: UNK
  7. DESIPRAMINE HYDROCHLORIDE [Suspect]
     Dosage: UNK

REACTIONS (1)
  - Drug hypersensitivity [Unknown]
